FAERS Safety Report 12850617 (Version 1)
Quarter: 2016Q4

REPORT INFORMATION
  Report Type: Spontaneous
  Country: US (occurrence: US)
  Receive Date: 20161014
  Receipt Date: 20161014
  Transmission Date: 20170207
  Serious: No
  Sender: FDA-Public Use
  Company Number: US-VISTAPHARM, INC.-1058374

PATIENT

DRUGS (3)
  1. KEPPRA [Concomitant]
     Active Substance: LEVETIRACETAM
  2. PHENYTOIN. [Suspect]
     Active Substance: PHENYTOIN
     Indication: SEIZURE
  3. DECADRON [Concomitant]
     Active Substance: DEXAMETHASONE

REACTIONS (3)
  - Mental impairment [None]
  - Mood altered [Unknown]
  - Swelling [None]
